FAERS Safety Report 6238976-2 (Version None)
Quarter: 2009Q2

REPORT INFORMATION
  Report Type: 
  Country: None (occurrence: None)
  Receive Date: 20090622
  Receipt Date: 20090616
  Transmission Date: 20091009
  Serious: Yes (Other)
  Sender: FDA-Public Use
  Company Number: A0779925A

PATIENT
  Age: 38 Year
  Sex: Female

DRUGS (6)
  1. IMITREX [Suspect]
     Indication: MIGRAINE
     Dosage: 25MG AS REQUIRED
     Route: 048
     Dates: start: 20020101, end: 20020101
  2. IMITREX [Suspect]
     Route: 045
     Dates: start: 20020601, end: 20020601
  3. TREXIMET [Suspect]
     Indication: MIGRAINE
     Dosage: 1TAB AS REQUIRED
     Route: 048
     Dates: start: 20090401
  4. ORTHO-NOVUM [Concomitant]
  5. SEASONALE [Concomitant]
     Indication: DRUG USE FOR UNKNOWN INDICATION
     Route: 048
  6. LORATADINE [Concomitant]
     Indication: DRUG USE FOR UNKNOWN INDICATION

REACTIONS (11)
  - ABNORMAL DREAMS [None]
  - CEREBROVASCULAR ACCIDENT [None]
  - DROOLING [None]
  - DRUG DISPENSING ERROR [None]
  - DRUG INEFFECTIVE [None]
  - EXPIRED DRUG ADMINISTERED [None]
  - HEADACHE [None]
  - LETHARGY [None]
  - MUSCULAR WEAKNESS [None]
  - NASAL DISCOMFORT [None]
  - POSTURE ABNORMAL [None]
